FAERS Safety Report 25206976 (Version 2)
Quarter: 2025Q2

REPORT INFORMATION
  Report Type: Report from Study
  Country: US (occurrence: US)
  Receive Date: 20250417
  Receipt Date: 20250618
  Transmission Date: 20250717
  Serious: No
  Sender: SUNOVION
  Company Number: US-SUMITOMO PHARMA SWITZERLAND GMBH-2025SPA003523

PATIENT

DRUGS (2)
  1. ORGOVYX [Suspect]
     Active Substance: RELUGOLIX
     Indication: Prostate cancer
     Route: 048
     Dates: start: 20250217, end: 20250217
  2. ORGOVYX [Suspect]
     Active Substance: RELUGOLIX
     Dosage: 120 MG, QD MAINTENANCE DOSE
     Route: 048
     Dates: start: 20250218

REACTIONS (8)
  - Dysgeusia [Unknown]
  - Rash pruritic [Recovering/Resolving]
  - Bowel movement irregularity [Unknown]
  - Arthralgia [Unknown]
  - Arthritis [Unknown]
  - Hot flush [Unknown]
  - Constipation [Unknown]
  - Diarrhoea [Unknown]
